FAERS Safety Report 15048046 (Version 3)
Quarter: 2018Q2

REPORT INFORMATION
  Report Type: Report from Study
  Country: DE (occurrence: DE)
  Receive Date: 20180622
  Receipt Date: 20180630
  Transmission Date: 20180711
  Serious: Yes (Hospitalization)
  Sender: FDA-Public Use
  Company Number: DE-TEVA-2018-DE-912185

PATIENT
  Age: 51 Year
  Sex: Male
  Weight: 77 kg

DRUGS (28)
  1. FOLINIC ACID [Suspect]
     Active Substance: LEUCOVORIN
     Indication: COLORECTAL CANCER METASTATIC
     Dosage: DAILY DOSE: 400 MG MILLGRAM(S) EVERY 2 WEEKS
     Route: 042
     Dates: start: 20150820, end: 20150820
  2. DEXAMETHASONE. [Concomitant]
     Active Substance: DEXAMETHASONE
     Indication: VOMITING
     Dosage: FREQUENCY: CYCLICAL
     Route: 042
     Dates: start: 20150820
  3. FOLINIC ACID [Suspect]
     Active Substance: LEUCOVORIN
     Route: 042
     Dates: start: 20151001, end: 20151001
  4. OXALIPLATIN. [Suspect]
     Active Substance: OXALIPLATIN
     Dosage: DAILY DOSE: 85 MG MILLGRAM(S) EVERY 2 WEEKS
     Route: 042
     Dates: start: 20151001, end: 20151001
  5. UNACID [Concomitant]
     Indication: URINARY TRACT INFECTION
     Dosage: 2-0-2
     Route: 048
     Dates: start: 20160817, end: 20170821
  6. ATROPIN [Concomitant]
     Active Substance: ATROPINE
     Dosage: FREQUENCY: CYCLICAL
     Route: 058
     Dates: start: 20150820, end: 20160309
  7. CIPROBAY [Concomitant]
     Active Substance: CIPROFLOXACIN
     Dosage: 500 MILLIGRAM DAILY;
     Route: 048
     Dates: start: 20160209, end: 20160213
  8. OXALIPLATIN. [Suspect]
     Active Substance: OXALIPLATIN
     Dosage: DAILY DOSE: 85 MG MILLGRAM(S) EVERY 2 WEEKS
     Route: 042
     Dates: start: 20150820, end: 20150820
  9. 5-FLUOROURACIL [Suspect]
     Active Substance: FLUOROURACIL
     Dosage: DAILY DOSE: 2400 MG MILLGRAM(S) EVERY 2 WEEKS
     Route: 042
     Dates: start: 20150820, end: 20150822
  10. IRINOTECAN [Suspect]
     Active Substance: IRINOTECAN
     Indication: COLORECTAL CANCER METASTATIC
     Dosage: DAILY DOSE: 170 MG MILLGRAM(S) EVERY 15 DAYS
     Route: 042
     Dates: start: 20150820, end: 20150820
  11. FILGRASTIM [Concomitant]
     Active Substance: FILGRASTIM
     Indication: NEUTROPENIA
     Dosage: 30 MIU.
     Route: 058
     Dates: start: 20150825, end: 20160309
  12. GRANISETRON [Concomitant]
     Active Substance: GRANISETRON
     Indication: VOMITING
     Dosage: FREQUENCY: CYCLICAL
     Route: 042
     Dates: start: 20150820
  13. 5-FLUOROURACIL [Suspect]
     Active Substance: FLUOROURACIL
     Indication: COLORECTAL CANCER METASTATIC
     Dosage: DAILY DOSE: 400 MG MILLGRAM(S) EVERY 2 WEEKS
     Route: 040
     Dates: start: 20150820
  14. 5-FLUOROURACIL [Suspect]
     Active Substance: FLUOROURACIL
     Route: 042
     Dates: start: 20151001, end: 20151003
  15. IRINOTECAN [Suspect]
     Active Substance: IRINOTECAN
     Dosage: DAILY DOSE: 360 MG MILLGRAM(S) EVERY 2 WEEKS
     Route: 042
     Dates: start: 20151001, end: 20151001
  16. MCP [Concomitant]
     Active Substance: METOCLOPRAMIDE HYDROCHLORIDE
     Indication: PAIN
     Route: 048
     Dates: start: 20150811
  17. CIPROBAY [Concomitant]
     Active Substance: CIPROFLOXACIN
     Route: 048
     Dates: start: 20160113, end: 20160117
  18. FERRO SANOL [Concomitant]
     Active Substance: FERROUS GLYCINE SULFATE
     Indication: IRON DEFICIENCY ANAEMIA
     Dosage: 100 MILLIGRAM DAILY;
     Route: 048
     Dates: start: 20151021, end: 20151031
  19. OXALIPLATIN. [Suspect]
     Active Substance: OXALIPLATIN
     Indication: COLORECTAL CANCER METASTATIC
     Dosage: DAILY DOSE: 170 MG MILLGRAM(S) EVERY 2 WEEKS
     Dates: start: 20150820
  20. BEVACIZUMAB. [Suspect]
     Active Substance: BEVACIZUMAB
     Dosage: 375 MG
     Dates: start: 20150903, end: 20150903
  21. 5-FLUOROURACIL [Suspect]
     Active Substance: FLUOROURACIL
     Route: 040
     Dates: start: 20151001, end: 20151001
  22. AVASTIN [Suspect]
     Active Substance: BEVACIZUMAB
     Indication: COLORECTAL CANCER METASTATIC
     Dosage: DAILY DOSE: 5 MG/KG MILLIGRAM(S)/KILOGRAM EVERY 15 DAYS
     Route: 042
     Dates: start: 20150903
  23. BEVACIZUMAB. [Suspect]
     Active Substance: BEVACIZUMAB
     Indication: COLORECTAL CANCER METASTATIC
     Dosage: THERAPY RESTARTED
     Route: 042
  24. ONDANSETRON [Concomitant]
     Active Substance: ONDANSETRON
     Indication: VOMITING
     Route: 048
     Dates: start: 20150903
  25. IRINOTECAN [Suspect]
     Active Substance: IRINOTECAN
     Dosage: DAILY DOSE: 360 MG MILLGRAM(S) EVERY 2 WEEKS
     Route: 042
     Dates: start: 20150820
  26. BEVACIZUMAB. [Suspect]
     Active Substance: BEVACIZUMAB
     Dosage: 360 MG THERAPY INTERRUPTED
     Route: 042
     Dates: start: 20151001, end: 20151001
  27. METAMIZOL [Concomitant]
     Active Substance: METAMIZOLE SODIUM
     Indication: PAIN
     Route: 048
     Dates: start: 20150811
  28. CIPROBAY [Concomitant]
     Active Substance: CIPROFLOXACIN
     Indication: URINARY TRACT INFECTION
     Dosage: 500 MILLIGRAM DAILY;
     Route: 048
     Dates: start: 20160524, end: 20160529

REACTIONS (1)
  - Tumour perforation [Recovered/Resolved]

NARRATIVE: CASE EVENT DATE: 20151006
